FAERS Safety Report 6070180-3 (Version None)
Quarter: 2009Q1

REPORT INFORMATION
  Report Type: 
  Country: None (occurrence: None)
  Receive Date: 20090204
  Receipt Date: 20090128
  Transmission Date: 20090719
  Serious: Yes (Hospitalization)
  Sender: FDA-Public Use
  Company Number: 2006SP005610

PATIENT
  Age: 47 Year
  Sex: Male
  Weight: 88 kg

DRUGS (6)
  1. PEG-INTRON [Suspect]
     Indication: HEPATITIS C
     Dosage: 150 MCG;QW;SC
     Route: 058
     Dates: start: 20061004, end: 20061101
  2. REBETOL [Suspect]
     Indication: HEPATITIS C
     Dosage: 1200 MG;QD;PO
     Route: 048
     Dates: start: 20061004, end: 20061103
  3. XATRAL /00975301/ [Concomitant]
  4. SEROPRAM /00582602/ [Concomitant]
  5. CITALOPRAM HYDROBROMIDE [Concomitant]
  6. ALFUZOSIN HYDROCHLORIDE [Concomitant]

REACTIONS (2)
  - ABDOMINAL PAIN [None]
  - PERICARDITIS [None]
